FAERS Safety Report 7638481-2 (Version None)
Quarter: 2011Q3

REPORT INFORMATION
  Report Type: 
  Country: None (occurrence: None)
  Receive Date: 20110727
  Receipt Date: 20110623
  Transmission Date: 20111222
  Serious: No
  Sender: FDA-Public Use
  Company Number: US-BAYER-2011-056515

PATIENT
  Age: 44 Year
  Sex: Female
  Weight: 49 kg

DRUGS (1)
  1. ALEVE (CAPLET) [Suspect]
     Indication: PRODUCT USED FOR UNKNOWN INDICATION
     Dosage: 6 DF, 12 HOURS
     Route: 048

REACTIONS (2)
  - NERVOUSNESS [None]
  - ABDOMINAL DISCOMFORT [None]
